FAERS Safety Report 6795156-X (Version None)
Quarter: 2010Q2

REPORT INFORMATION
  Report Type: 
  Country: None (occurrence: None)
  Receive Date: 20100625
  Receipt Date: 20100625
  Transmission Date: 20101027
  Serious: Yes (Hospitalization)
  Sender: FDA-Public Use
  Company Number: PHHO2008JP08657

PATIENT
  Sex: Female
  Weight: 155 kg

DRUGS (3)
  1. AFINITOR [Suspect]
     Indication: PANCREATIC NEUROENDOCRINE TUMOUR
     Dosage: 10 MG DAILY
     Route: 048
     Dates: start: 20080509, end: 20080626
  2. NORVASC [Concomitant]
     Dosage: 5 MG / DAY
     Route: 048
     Dates: start: 20070701
  3. CRAVIT [Concomitant]
     Dosage: 300 MG / DAY
     Route: 048
     Dates: start: 20080602

REACTIONS (10)
  - DEHYDRATION [None]
  - DYSPNOEA [None]
  - HYPOPHAGIA [None]
  - INFLAMMATION [None]
  - INTERSTITIAL LUNG DISEASE [None]
  - LUNG DISORDER [None]
  - LUNG INFILTRATION [None]
  - PALPITATIONS [None]
  - PO2 DECREASED [None]
  - PYREXIA [None]
